FAERS Safety Report 6353434-2 (Version None)
Quarter: 2009Q3

REPORT INFORMATION
  Report Type: 
  Country: None (occurrence: None)
  Receive Date: 20090912
  Receipt Date: 20090622
  Transmission Date: 20100115
  Serious: No
  Sender: FDA-Public Use
  Company Number: US-ABBOTT-08P-163-0471568-00

PATIENT
  Sex: Male
  Weight: 90.9 kg

DRUGS (2)
  1. HUMIRA [Suspect]
     Indication: CROHN'S DISEASE
     Route: 050
     Dates: start: 20080701
  2. CYANOCOBALAMIN [Concomitant]
     Indication: DRUG USE FOR UNKNOWN INDICATION
     Route: 050

REACTIONS (2)
  - DRUG DELIVERY SYSTEM MALFUNCTION [None]
  - INJECTION SITE IRRITATION [None]
